FAERS Safety Report 4431161-6 (Version None)
Quarter: 2004Q3

REPORT INFORMATION
  Report Type: 
  Country: None (occurrence: None)
  Receive Date: 20040824
  Receipt Date: 20040813
  Transmission Date: 20050211
  Serious: Yes (Other)
  Sender: FDA-Public Use
  Company Number: ES-JNJFOC-20040804469

PATIENT
  Age: 54 Year
  Sex: Female

DRUGS (2)
  1. TOPAMAX [Suspect]
     Route: 049
  2. TRAMADOL HCL [Suspect]
     Indication: DRUG USE FOR UNKNOWN INDICATION
     Route: 049

REACTIONS (1)
  - ABDOMINAL DISTENSION [None]
